FAERS Safety Report 9701878 (Version 3)
Quarter: 2014Q1

REPORT INFORMATION
  Report Type: Spontaneous
  Country: US (occurrence: US)
  Receive Date: 20131121
  Receipt Date: 20140114
  Transmission Date: 20141002
  Serious: No
  Sender: FDA-Public Use
  Company Number: US-PFIZER INC-2013333065

PATIENT
  Age: 54 Year
  Sex: Male
  Weight: 84.81 kg

DRUGS (4)
  1. CHANTIX [Suspect]
     Indication: SMOKING CESSATION THERAPY
     Dosage: 0.5 MG, 1X/DAY
     Route: 048
     Dates: start: 201311, end: 201311
  2. CHANTIX [Suspect]
     Dosage: 1.71 MG, 2X/DAY
     Route: 048
     Dates: start: 201311
  3. NAPROXEN [Concomitant]
     Indication: PAIN
     Dosage: 250 MG, AS NEEDED
  4. TRAMADOL [Concomitant]
     Indication: PAIN
     Dosage: 325 MG, 1X/DAY

REACTIONS (5)
  - Abdominal pain upper [Unknown]
  - Weight abnormal [Unknown]
  - Incorrect dose administered [Unknown]
  - Abdominal pain upper [Unknown]
  - Nausea [Unknown]
